FAERS Safety Report 4852820-7 (Version None)
Quarter: 2005Q4

REPORT INFORMATION
  Report Type: 
  Country: None (occurrence: None)
  Receive Date: 20051212
  Receipt Date: 20051212
  Transmission Date: 20060501
  Serious: Yes (Life-Threatening)
  Sender: FDA-Public Use
  Company Number: None

PATIENT
  Age: 82 Year
  Sex: Male
  Weight: 101.8 kg

DRUGS (2)
  1. NALOXONE [Suspect]
     Indication: REVERSAL OF OPIATE ACTIVITY
     Dosage: 0.4 MG ONCE IV
     Route: 042
     Dates: start: 20051128, end: 20051128
  2. NALOXONE [Suspect]
     Indication: SEDATION
     Dosage: 0.4 MG ONCE IV
     Route: 042
     Dates: start: 20051128, end: 20051128

REACTIONS (5)
  - DYSPHAGIA [None]
  - DYSPNOEA [None]
  - NAUSEA [None]
  - RETCHING [None]
  - THROAT TIGHTNESS [None]
